FAERS Safety Report 23539695 (Version 1)
Quarter: 2024Q1

REPORT INFORMATION
  Report Type: Spontaneous
  Country: US (occurrence: None)
  Receive Date: 20240219
  Receipt Date: 20240219
  Transmission Date: 20240410
  Serious: No
  Sender: FDA-Public Use
  Company Number: 2024A037281

PATIENT
  Sex: Female

DRUGS (1)
  1. LYNPARZA [Suspect]
     Active Substance: OLAPARIB
     Route: 048
     Dates: start: 2023

REACTIONS (11)
  - Quality of life decreased [Unknown]
  - General physical health deterioration [Unknown]
  - Dysstasia [Unknown]
  - Impaired driving ability [Unknown]
  - Amnesia [Unknown]
  - Feeling abnormal [Unknown]
  - Hypersomnia [Unknown]
  - Vomiting [Unknown]
  - Product dose omission issue [Unknown]
  - Product dispensing error [Unknown]
  - Wrong dose [Unknown]
